FAERS Safety Report 19255664 (Version 1)
Quarter: 2021Q2

REPORT INFORMATION
  Report Type: Report from Study
  Country: US (occurrence: US)
  Receive Date: 20210514
  Receipt Date: 20210514
  Transmission Date: 20210717
  Serious: Yes (Hospitalization)
  Sender: FDA-Public Use
  Company Number: US-JNJFOC-20210505255

PATIENT
  Sex: Female

DRUGS (9)
  1. PREDNISONE. [Concomitant]
     Active Substance: PREDNISONE
  2. MACITENTAN [Suspect]
     Active Substance: MACITENTAN
     Indication: PULMONARY HYPERTENSION
     Route: 048
  3. PROTONIX [Concomitant]
     Active Substance: PANTOPRAZOLE SODIUM
     Dosage: TABLET 40 MG
  4. COUMADIN [Concomitant]
     Active Substance: WARFARIN SODIUM
     Dosage: TABLET 5 MG
  5. DEXAMETHASONE. [Concomitant]
     Active Substance: DEXAMETHASONE
  6. ULORIC [Concomitant]
     Active Substance: FEBUXOSTAT
  7. POTASSIUM CHLORIDE. [Concomitant]
     Active Substance: POTASSIUM CHLORIDE
  8. SILDENAFIL. [Concomitant]
     Active Substance: SILDENAFIL
  9. WARFARIN SODIUM. [Concomitant]
     Active Substance: WARFARIN SODIUM

REACTIONS (2)
  - Cholecystectomy [Recovered/Resolved]
  - Hepatic cyst [Recovered/Resolved]
